FAERS Safety Report 9671437 (Version 1)
Quarter: 2013Q4

REPORT INFORMATION
  Report Type: Spontaneous
  Country: US (occurrence: US)
  Receive Date: 20131106
  Receipt Date: 20131106
  Transmission Date: 20140711
  Serious: Yes (Hospitalization)
  Sender: FDA-Public Use
  Company Number: US-PFIZER INC-2013313095

PATIENT
  Age: 68 Year
  Sex: Male

DRUGS (1)
  1. VFEND [Suspect]
     Indication: GENITAL DISORDER MALE
     Dosage: 200 MG, UNK
     Dates: start: 20130301

REACTIONS (2)
  - Pneumonia [Unknown]
  - Viral infection [Unknown]
